FAERS Safety Report 6122457-0 (Version None)
Quarter: 2009Q1

REPORT INFORMATION
  Report Type: 
  Country: None (occurrence: None)
  Receive Date: 20090318
  Receipt Date: 20090112
  Transmission Date: 20090719
  Serious: Yes (Hospitalization)
  Sender: FDA-Public Use
  Company Number: US-ASTRAZENECA-2009UW00975

PATIENT
  Age: 81 Year
  Sex: Female
  Weight: 54.4 kg

DRUGS (7)
  1. SYMBICORT [Suspect]
     Indication: ASTHMA
     Dosage: 160 /4.5 UG 2 PUFFS TWICE PER DAY
     Route: 055
     Dates: start: 20080101, end: 20081229
  2. SYMBICORT [Suspect]
     Dosage: 160 /4.5 UG 2 PUFFS TWICE PER DAY
     Route: 055
     Dates: start: 20090103
  3. XOPENEX [Concomitant]
  4. SINGULAIR [Concomitant]
  5. PROVENTIL [Concomitant]
     Dosage: AS NEEDED
  6. PLAVIX [Concomitant]
  7. PREDNISONE [Concomitant]

REACTIONS (3)
  - DYSURIA [None]
  - MICTURITION URGENCY [None]
  - PNEUMONIA [None]
